FAERS Safety Report 5705530-8 (Version None)
Quarter: 2008Q2

REPORT INFORMATION
  Report Type: 
  Country: None (occurrence: None)
  Receive Date: 20080411
  Receipt Date: 20080326
  Transmission Date: 20081010
  Serious: Yes (Life-Threatening, Hospitalization)
  Sender: FDA-Public Use
  Company Number: 2008EU000635

PATIENT
  Age: 75 Year
  Sex: Male

DRUGS (8)
  1. TACROLIMUS [Suspect]
     Indication: RENAL TRANSPLANT
     Dosage: DF, /D, ORAL; DF, BID, ORAL
     Route: 048
     Dates: start: 20070430, end: 20080117
  2. TACROLIMUS [Suspect]
     Indication: RENAL TRANSPLANT
     Dosage: DF, /D, ORAL; DF, BID, ORAL
     Route: 048
     Dates: start: 20080121, end: 20080127
  3. NEORAL [Suspect]
     Indication: RENAL TRANSPLANT
     Dosage: 5 MG, UID/QD, ORAL
     Route: 048
     Dates: start: 20080117, end: 20080120
  4. CELLCEPT [Concomitant]
  5. PREDNISONE TAB [Concomitant]
  6. CATAPRES [Concomitant]
  7. AMLODIPINE BESYLATE [Concomitant]
  8. IMUREL [Concomitant]

REACTIONS (14)
  - ANOREXIA [None]
  - BK VIRUS INFECTION [None]
  - BLOOD CREATININE INCREASED [None]
  - BLOOD UREA INCREASED [None]
  - DEHYDRATION [None]
  - DIALYSIS [None]
  - HYPERNATRAEMIA [None]
  - LEUKOCYTOSIS [None]
  - LUNG DISORDER [None]
  - METABOLIC ENCEPHALOPATHY [None]
  - MYOCLONUS [None]
  - OLIGURIA [None]
  - PYREXIA [None]
  - TREMOR [None]
